FAERS Safety Report 9504703 (Version 5)
Quarter: 2013Q4

REPORT INFORMATION
  Report Type: Report from Study
  Country: HR (occurrence: HR)
  Receive Date: 20130906
  Receipt Date: 20131106
  Transmission Date: 20140711
  Serious: Yes (Hospitalization)
  Sender: FDA-Public Use
  Company Number: HR-TAKEDA-TPA2013A06859

PATIENT
  Age: 62 Year
  Sex: Male
  Weight: 74 kg

DRUGS (19)
  1. BLINDED ALLOPURINOL [Suspect]
     Indication: TUMOUR LYSIS SYNDROME
     Dosage: UNK, QD
     Route: 048
     Dates: start: 20130621, end: 20130627
  2. BLINDED FEBUXOSTAT [Suspect]
     Indication: TUMOUR LYSIS SYNDROME
     Dosage: UNK, QD
     Route: 048
     Dates: start: 20130621, end: 20130627
  3. ALLOPURINOL [Suspect]
     Indication: TUMOUR LYSIS SYNDROME
     Dosage: UNK, QD
     Route: 048
     Dates: start: 20130621, end: 20130627
  4. TRAMAL [Concomitant]
     Indication: PAIN
     Dosage: 100 MG, TID
     Route: 058
     Dates: start: 20130614, end: 20130628
  5. CONTROLOC [Concomitant]
     Indication: GASTRITIS PROPHYLAXIS
     Dosage: 40 MG, BID
     Route: 048
     Dates: start: 20130614
  6. PARACETAMOL [Concomitant]
     Indication: PYREXIA
     Dosage: 500 MG, PRN
     Route: 048
     Dates: start: 20130614, end: 20130628
  7. SOLU-MEDROL [Concomitant]
     Dosage: 100 MG, QD
     Route: 042
     Dates: start: 20130614, end: 20130627
  8. CLINDAMYCIN [Concomitant]
     Indication: INFECTION
     Dosage: 600 MG, TID
     Route: 042
     Dates: start: 20130617, end: 20130628
  9. NORMABEL [Concomitant]
     Indication: INSOMNIA
     Route: 042
     Dates: start: 20130617, end: 20130628
  10. TAZOCIN [Concomitant]
     Indication: INFECTION
     Dosage: 4.5 G, QID
     Route: 042
     Dates: start: 20130618, end: 20130628
  11. EDICIN [Concomitant]
     Indication: INFECTION
     Dosage: 1 G, BID
     Route: 042
     Dates: start: 20130618, end: 20130628
  12. KYTRIL [Concomitant]
     Indication: PROPHYLAXIS OF NAUSEA AND VOMITING
     Dosage: 3 MG, PRN
     Route: 042
     Dates: start: 20130623, end: 20130628
  13. ACTRAPID [Concomitant]
     Indication: DIABETES MELLITUS
     Dosage: 18 IU, PRN
     Route: 058
     Dates: start: 20130624, end: 20130628
  14. CYCLOPHOSPHAMIDE MONOHYDRATE [Concomitant]
     Indication: CHEMOTHERAPY
     Dates: start: 20130623, end: 20130624
  15. DOXORUBICIN [Concomitant]
     Indication: CHEMOTHERAPY
     Dates: start: 20130623, end: 20130624
  16. ONCOVIN [Concomitant]
     Indication: CHEMOTHERAPY
     Dates: start: 20130623, end: 20130624
  17. PREDNISOLONE [Concomitant]
     Indication: CHEMOTHERAPY
     Dates: start: 20130623, end: 20130624
  18. CAPHOSOL [Concomitant]
     Indication: PROPHYLAXIS
     Dosage: UNK, TID
     Route: 048
     Dates: start: 20130628
  19. NEULASTIM [Concomitant]
     Indication: PROPHYLAXIS
     Dosage: 30 ?G, QD
     Route: 058
     Dates: start: 20130627, end: 20130627

REACTIONS (1)
  - Pyrexia [Unknown]
